FAERS Safety Report 8771119 (Version 1)
Quarter: 2012Q4

REPORT INFORMATION
  Report Type: 
  Country: US (occurrence: US)
  Receive Date: 20120906
  Receipt Date: 20120906
  Transmission Date: 20130627
  Serious: Yes (Other)
  Sender: FDA-Public Use
  Company Number: US-PFIZER INC-2012181752

PATIENT
  Age: 39 Year
  Sex: Female

DRUGS (7)
  1. LYRICA [Suspect]
     Dosage: 75 mg, 1x/day
     Dates: start: 20110815
  2. IBUPROFEN [Concomitant]
     Dosage: UNK
  3. CYCLOBENZAPRINE [Concomitant]
     Dosage: UNK
  4. GABAPENTIN [Concomitant]
     Dosage: UNK
  5. TRAZODONE [Concomitant]
     Dosage: UNK
  6. BUSPAR [Concomitant]
     Dosage: UNK
  7. CITALOPRAM [Concomitant]
     Dosage: UNK

REACTIONS (8)
  - Myofascial pain syndrome [Unknown]
  - Insomnia [Unknown]
  - Bowel movement irregularity [Unknown]
  - Painful defaecation [Unknown]
  - Depression [Unknown]
  - Anxiety [Unknown]
  - Muscular weakness [Unknown]
  - Joint range of motion decreased [Unknown]
